FAERS Safety Report 8451150-4 (Version None)
Quarter: 2012Q2

REPORT INFORMATION
  Report Type: 
  Country: None (occurrence: None)
  Receive Date: 20120620
  Receipt Date: 20120406
  Transmission Date: 20120825
  Serious: No
  Sender: FDA-Public Use
  Company Number: US-VERTEX PHARMACEUTICALS INC.-AE-2011-001639

PATIENT
  Sex: Male
  Weight: 94.886 kg

DRUGS (10)
  1. COPEGUS [Concomitant]
     Indication: HEPATITIS C
     Route: 048
     Dates: start: 20110906, end: 20110920
  2. INCIVEK [Suspect]
     Route: 048
     Dates: start: 20120124
  3. PEGINTERFERON ALFA-2A [Concomitant]
     Route: 058
     Dates: start: 20120124
  4. ATENOLOL [Concomitant]
     Indication: HYPERTENSION
     Route: 048
  5. INCIVEK [Suspect]
     Indication: HEPATITIS C
     Route: 048
     Dates: start: 20110906, end: 20110920
  6. INSULIN [Concomitant]
     Indication: DIABETES MELLITUS
     Route: 058
  7. CAPTOPRIL [Concomitant]
     Indication: HYPERTENSION
     Route: 048
  8. PEGINTERFERON ALFA-2A [Concomitant]
     Indication: HEPATITIS C
     Route: 058
     Dates: start: 20110906, end: 20110920
  9. NORVASC [Concomitant]
     Indication: HYPERTENSION
     Route: 048
  10. COPEGUS [Concomitant]
     Route: 048
     Dates: start: 20120124

REACTIONS (10)
  - ABDOMINAL DISCOMFORT [None]
  - LOCALISED INFECTION [None]
  - PAIN [None]
  - HEADACHE [None]
  - ARTHRALGIA [None]
  - NAUSEA [None]
  - FEELING ABNORMAL [None]
  - ADVERSE EVENT [None]
  - MYALGIA [None]
  - IRRITABILITY [None]
